FAERS Safety Report 14434636 (Version 1)
Quarter: 2018Q1

REPORT INFORMATION
  Report Type: Spontaneous
  Country: US (occurrence: US)
  Receive Date: 20180124
  Receipt Date: 20180124
  Transmission Date: 20180509
  Serious: No
  Sender: FDA-Public Use
  Company Number: US-BAUSCH-BL-2017-020791

PATIENT
  Sex: Male

DRUGS (3)
  1. VITRASE [Suspect]
     Active Substance: HYALURONIDASE, OVINE
     Indication: NERVE BLOCK
     Dosage: 100 UNITS
     Route: 047
     Dates: start: 20170705, end: 20170705
  2. BUPIVACAINE. [Suspect]
     Active Substance: BUPIVACAINE
     Indication: NERVE BLOCK
     Route: 047
     Dates: start: 20170705, end: 20170705
  3. LIDOCAINE. [Suspect]
     Active Substance: LIDOCAINE
     Indication: NERVE BLOCK
     Route: 047
     Dates: start: 20170705, end: 20170705

REACTIONS (1)
  - Accidental exposure to product [Unknown]

NARRATIVE: CASE EVENT DATE: 20170705
